FAERS Safety Report 13268731 (Version 1)
Quarter: 2017Q1

REPORT INFORMATION
  Report Type: Spontaneous
  Country: US (occurrence: US)
  Receive Date: 20170224
  Receipt Date: 20170224
  Transmission Date: 20170428
  Serious: No
  Sender: FDA-Public Use
  Company Number: None

PATIENT
  Age: 25 Year
  Sex: Female

DRUGS (1)
  1. GILENYA [Suspect]
     Active Substance: FINGOLIMOD HYDROCHLORIDE
     Indication: MULTIPLE SCLEROSIS
     Dosage: 0.5MG CAPS DAILY ORALLY
     Route: 048
     Dates: start: 20160831, end: 20170208

REACTIONS (2)
  - Platelet disorder [None]
  - White blood cell count increased [None]

NARRATIVE: CASE EVENT DATE: 20170208
